FAERS Safety Report 17583660 (Version 1)
Quarter: 2020Q1

REPORT INFORMATION
  Report Type: Report from Study
  Country: GB (occurrence: GB)
  Receive Date: 20200326
  Receipt Date: 20200326
  Transmission Date: 20200409
  Serious: Yes (Hospitalization)
  Sender: FDA-Public Use
  Company Number: GB-SAMSUNG BIOEPIS-SB-2020-05575

PATIENT
  Age: 49 Year
  Sex: Female

DRUGS (1)
  1. IMRALDI [Suspect]
     Active Substance: ADALIMUMAB
     Indication: RHEUMATOID ARTHRITIS
     Route: 058

REACTIONS (5)
  - Influenza [Recovered/Resolved]
  - Infection [Recovered/Resolved]
  - Sinusitis [Unknown]
  - Lower respiratory tract infection [Recovered/Resolved]
  - Bacterial infection [Recovered/Resolved]
